FAERS Safety Report 7096118-8 (Version None)
Quarter: 2010Q4

REPORT INFORMATION
  Report Type: 
  Country: None (occurrence: None)
  Receive Date: 20101111
  Receipt Date: 20101029
  Transmission Date: 20110411
  Serious: Yes (Death, Life-Threatening, Other)
  Sender: FDA-Public Use
  Company Number: AT-ROCHE-734020

PATIENT
  Sex: Male
  Weight: 63 kg

DRUGS (7)
  1. ROACTEMRA [Suspect]
     Indication: RHEUMATOID ARTHRITIS
     Dosage: DOSE: 8 MG/KG
     Route: 042
     Dates: start: 20090501
  2. ROACTEMRA [Suspect]
     Route: 042
     Dates: start: 20100623
  3. ROACTEMRA [Suspect]
     Route: 042
     Dates: start: 20100723
  4. ROACTEMRA [Suspect]
     Route: 042
     Dates: start: 20100825
  5. ROACTEMRA [Suspect]
     Route: 042
     Dates: start: 20100922
  6. URBASON [Concomitant]
     Dosage: FREQUENCY: AGL
     Route: 048
  7. PANTOPRAZOLE [Concomitant]
     Dosage: FREQUENCY: AGL
     Route: 048

REACTIONS (5)
  - ANASTOMOTIC COMPLICATION [None]
  - MYOCARDIAL INFARCTION [None]
  - PERITONITIS [None]
  - SEPSIS [None]
  - SMALL INTESTINAL PERFORATION [None]
